FAERS Safety Report 4441388-5 (Version None)
Quarter: 2004Q3

REPORT INFORMATION
  Report Type: 
  Country: None (occurrence: None)
  Receive Date: 20040728
  Receipt Date: 20040428
  Transmission Date: 20050211
  Serious: No
  Sender: FDA-Public Use
  Company Number: USA040466207

PATIENT
  Age: 57 Year
  Sex: Female

DRUGS (4)
  1. STRATTERA [Suspect]
     Dosage: 60 MG DAY
     Dates: start: 20040201
  2. CELEXA [Concomitant]
  3. CLONAZEPAM [Concomitant]
  4. FOSAMAX [Concomitant]

REACTIONS (1)
  - ALOPECIA [None]
